FAERS Safety Report 7278232-7 (Version None)
Quarter: 2010Q4

REPORT INFORMATION
  Report Type: 
  Country: None (occurrence: None)
  Receive Date: 20101206
  Receipt Date: 20101020
  Transmission Date: 20110411
  Serious: No
  Sender: FDA-Public Use
  Company Number: 2010SP056129

PATIENT
  Age: 32 Year
  Sex: Male

DRUGS (1)
  1. SAPHRIS [Suspect]
     Indication: SCHIZOPHRENIA
     Dosage: 5 MG;BID
     Dates: start: 20100930

REACTIONS (3)
  - BREAST TENDERNESS [None]
  - DISCOMFORT [None]
  - FEELING ABNORMAL [None]
